FAERS Safety Report 15364903 (Version 1)
Quarter: 2018Q3

REPORT INFORMATION
  Report Type: Spontaneous
  Country: FR (occurrence: FR)
  Receive Date: 20180910
  Receipt Date: 20180910
  Transmission Date: 20181010
  Serious: Yes (Hospitalization)
  Sender: FDA-Public Use
  Company Number: FR-AUROBINDO-AUR-APL-2018-044970

PATIENT
  Age: 6 Decade
  Sex: Female

DRUGS (1)
  1. ARIPIPRAZOLE TABLETS [Suspect]
     Active Substance: ARIPIPRAZOLE
     Indication: PRODUCT USED FOR UNKNOWN INDICATION
     Dosage: 5 MILLIGRAM, ONCE A DAY
     Route: 048

REACTIONS (3)
  - Dyskinesia [Not Recovered/Not Resolved]
  - Psychotic disorder [Unknown]
  - Underdose [Unknown]

NARRATIVE: CASE EVENT DATE: 201807
